FAERS Safety Report 14889891 (Version 2)
Quarter: 2021Q3

REPORT INFORMATION
  Report Type: Spontaneous
  Country: US (occurrence: US)
  Receive Date: 20180514
  Receipt Date: 20210929
  Transmission Date: 20211014
  Serious: Yes (Disabling)
  Sender: FDA-Public Use
  Company Number: US-TEVA-2018-US-891385

PATIENT
  Age: 60 Year
  Sex: Female

DRUGS (19)
  1. DOCETAXEL  MCKESSON [Suspect]
     Active Substance: DOCETAXEL
     Indication: MEDULLARY CARCINOMA OF BREAST
     Dosage: NUMBER OF CYCLE ?04, FREQUENCY ? EVERY THREE WEEKS
     Route: 042
     Dates: start: 20150917, end: 20151119
  2. METHOCARBAMOL. [Concomitant]
     Active Substance: METHOCARBAMOL
     Dosage: 2250 MILLIGRAM DAILY;
     Route: 048
  3. FELODIPINE. [Concomitant]
     Active Substance: FELODIPINE
     Dates: start: 20100101
  4. HYDROXYCHLOROQUINE [Concomitant]
     Active Substance: HYDROXYCHLOROQUINE
     Indication: SYSTEMIC LUPUS ERYTHEMATOSUS
     Dates: start: 20140101
  5. DOCETAXEL SAGENT [Suspect]
     Active Substance: DOCETAXEL
     Indication: MEDULLARY CARCINOMA OF BREAST
     Dosage: NUMBER OF CYCLE ?04, FREQUENCY?EVERY THREE WEEKS
     Route: 042
     Dates: start: 20150917, end: 20151119
  6. DOCETAXEL  SANOFI [Suspect]
     Active Substance: DOCETAXEL
     Indication: MEDULLARY CARCINOMA OF BREAST
     Dosage: NUMBER OF CYCLE ?04, FREQUENCY ? EVERY THREE WEEKS
     Route: 042
     Dates: start: 20150917, end: 20151119
  7. TOLTERODINE [Concomitant]
     Active Substance: TOLTERODINE
     Dates: start: 20140101
  8. DECADRON [Concomitant]
     Active Substance: DEXAMETHASONE
     Dosage: 8 MILLIGRAM DAILY; 4MG BID X3 DAYS
     Route: 065
  9. ASPIRIN. [Concomitant]
     Active Substance: ASPIRIN
     Route: 065
  10. DOCETAXEL ACCORD [Suspect]
     Active Substance: DOCETAXEL
     Indication: MEDULLARY CARCINOMA OF BREAST
     Dosage: NUMBER OF CYCLE ?04, FREQUENCY ? EVERY THREE WEEKS
     Route: 042
     Dates: start: 20150917, end: 20151119
  11. COMPAZINE [Concomitant]
     Active Substance: PROCHLORPERAZINE MALEATE
     Route: 065
  12. LORTAB [Concomitant]
     Active Substance: ACETAMINOPHEN\HYDROCODONE BITARTRATE
     Indication: PAIN
     Dosage: 7.5/500 MG, PRN
     Route: 048
  13. ADRIAMYCIN [Suspect]
     Active Substance: DOXORUBICIN HYDROCHLORIDE
     Indication: MEDULLARY CARCINOMA OF BREAST
     Dosage: NUMBER OF CYCLE ?04
     Route: 042
     Dates: start: 20150705, end: 20150827
  14. ANACIN NOS [Concomitant]
     Active Substance: ACETAMINOPHEN OR ACETAMINOPHEN\ASPIRIN\CAFFEINE OR ASPIRIN\CAFFEINE
     Dates: start: 2006
  15. HYDROXYCHLOROQUINE [Concomitant]
     Active Substance: HYDROXYCHLOROQUINE
     Indication: RHEUMATOID ARTHRITIS
  16. NEULASTA [Concomitant]
     Active Substance: PEGFILGRASTIM
     Route: 065
  17. BENAZEPRIL?HYDROCHLOROTHIAZIDE [Concomitant]
     Indication: HYPERTENSION
     Dosage: 20 MG?12.5 MG
     Route: 048
  18. CYCLOPHOSPHAMIDE. [Suspect]
     Active Substance: CYCLOPHOSPHAMIDE
     Indication: MEDULLARY CARCINOMA OF BREAST
     Dosage: NUMBER OF CYCLE ?04
     Route: 042
     Dates: start: 20150705, end: 20150827
  19. ZOFRAN [Concomitant]
     Active Substance: ONDANSETRON HYDROCHLORIDE
     Dosage: 16 MILLIGRAM DAILY; 8 MG BID X3D THEN PRN
     Route: 065

REACTIONS (4)
  - Madarosis [Not Recovered/Not Resolved]
  - Hair colour changes [Not Recovered/Not Resolved]
  - Alopecia areata [Not Recovered/Not Resolved]
  - Hair texture abnormal [Not Recovered/Not Resolved]

NARRATIVE: CASE EVENT DATE: 20151005
